FAERS Safety Report 7774984-8 (Version None)
Quarter: 2011Q3

REPORT INFORMATION
  Report Type: 
  Country: None (occurrence: None)
  Receive Date: 20110921
  Receipt Date: 20110906
  Transmission Date: 20111222
  Serious: Yes (Hospitalization, Other)
  Sender: FDA-Public Use
  Company Number: 2011P1008749

PATIENT
  Age: 63 Year
  Sex: Male
  Weight: 78.4723 kg

DRUGS (13)
  1. CRESTOR [Concomitant]
  2. LAMICTAL [Concomitant]
  3. BACLOFEN [Concomitant]
  4. WARFARIN SODIUM [Suspect]
     Indication: CEREBROVASCULAR ACCIDENT
     Dates: start: 20070602, end: 20080101
  5. WARFARIN SODIUM [Suspect]
     Indication: CEREBROVASCULAR ACCIDENT
     Dates: start: 20090412
  6. LANTUS [Concomitant]
  7. WARFARIN SODIUM [Suspect]
     Indication: CEREBROVASCULAR ACCIDENT
     Dates: start: 20070602, end: 20080101
  8. WARFARIN SODIUM [Suspect]
     Indication: CEREBROVASCULAR ACCIDENT
     Dates: start: 20080412
  9. VITAMIN D [Concomitant]
  10. HUMALOG [Concomitant]
  11. ASPIRIN [Concomitant]
  12. ADDERALL 5 [Concomitant]
  13. SLEEPING PILL [Concomitant]

REACTIONS (2)
  - CEREBROVASCULAR ACCIDENT [None]
  - INTERNATIONAL NORMALISED RATIO FLUCTUATION [None]
